FAERS Safety Report 11382832 (Version 1)
Quarter: 2015Q3

REPORT INFORMATION
  Report Type: Report from Study
  Country: US (occurrence: US)
  Receive Date: 20150814
  Receipt Date: 20150814
  Transmission Date: 20151125
  Serious: Yes (Other)
  Sender: FDA-Public Use
  Company Number: US-BAYER-2015-185103

PATIENT
  Age: 60 Year
  Sex: Male

DRUGS (1)
  1. NEXAVAR [Suspect]
     Active Substance: SORAFENIB
     Indication: HEPATOCELLULAR CARCINOMA
     Dosage: 400 MG, QD
     Route: 048
     Dates: start: 20150416

REACTIONS (16)
  - Erythema [None]
  - Peripheral swelling [Not Recovered/Not Resolved]
  - Weight decreased [Not Recovered/Not Resolved]
  - Joint swelling [None]
  - Dyspnoea [None]
  - Decreased appetite [Not Recovered/Not Resolved]
  - Drug administration error [None]
  - Abdominal distension [Not Recovered/Not Resolved]
  - Nausea [None]
  - Diarrhoea [Not Recovered/Not Resolved]
  - Underdose [None]
  - Intentional product misuse [None]
  - Abdominal distension [None]
  - Abdominal distension [None]
  - Pain [None]
  - Abdominal pain [Not Recovered/Not Resolved]

NARRATIVE: CASE EVENT DATE: 2015
